FAERS Safety Report 8289461-8 (Version None)
Quarter: 2012Q2

REPORT INFORMATION
  Report Type: 
  Country: None (occurrence: None)
  Receive Date: 20120417
  Receipt Date: 20120406
  Transmission Date: 20120825
  Serious: Yes (Death)
  Sender: FDA-Public Use
  Company Number: FR-SANOFI-AVENTIS-2012SA024240

PATIENT
  Age: 24 Day
  Sex: Female
  Weight: 0.85 kg

DRUGS (6)
  1. HYDROCORTISONE [Suspect]
     Indication: INFECTION
     Route: 042
     Dates: start: 20110331, end: 20110405
  2. CLAFORAN [Suspect]
     Indication: INFECTION
     Route: 042
     Dates: start: 20110331, end: 20110405
  3. CLAFORAN [Suspect]
     Route: 042
     Dates: start: 20110331, end: 20110405
  4. DOPAMINE HCL [Suspect]
     Indication: INFECTION
     Dosage: 5 TO 9 MCG/KG/MIN
     Route: 042
     Dates: start: 20110331, end: 20110402
  5. MICAFUNGINE [Suspect]
     Indication: INFECTION
     Route: 042
     Dates: start: 20110401, end: 20110405
  6. SUFENTANIL CITRATE [Suspect]
     Dosage: VARIABLE DOSE
     Route: 065
     Dates: end: 20110406

REACTIONS (1)
  - HYPERTROPHIC CARDIOMYOPATHY [None]
